FAERS Safety Report 9447439 (Version 2)
Quarter: 2014Q1

REPORT INFORMATION
  Report Type: Spontaneous
  Country: US (occurrence: US)
  Receive Date: 20130808
  Receipt Date: 20140325
  Transmission Date: 20141002
  Serious: Yes (Hospitalization, Other)
  Sender: FDA-Public Use
  Company Number: US-PFIZER INC-2013217107

PATIENT
  Age: 5 Year
  Sex: Male

DRUGS (3)
  1. DILANTIN [Suspect]
     Indication: CONVULSION
     Dosage: 50 MG, 3X/DAY
     Route: 048
     Dates: start: 19960421, end: 19960508
  2. DILANTIN [Suspect]
     Indication: CONVULSION
     Dosage: 300 MG, OVER SIX HOURS
     Route: 042
     Dates: start: 19960421
  3. TYLENOL [Concomitant]
     Dosage: UNK

REACTIONS (2)
  - Stevens-Johnson syndrome [Recovering/Resolving]
  - Toxic epidermal necrolysis [Recovering/Resolving]
